FAERS Safety Report 6201489-8 (Version None)
Quarter: 2009Q2

REPORT INFORMATION
  Report Type: 
  Country: None (occurrence: None)
  Receive Date: 20090519
  Receipt Date: 20090504
  Transmission Date: 20091009
  Serious: Yes (Hospitalization)
  Sender: FDA-Public Use
  Company Number: 2009S1007670

PATIENT
  Age: 33 Year
  Sex: Female

DRUGS (4)
  1. VALPROIC ACID [Suspect]
     Indication: PSYCHOTIC DISORDER
  2. PAROXETINE HCL [Concomitant]
  3. FLURAZEPAM [Concomitant]
  4. LORAZEPAM [Concomitant]

REACTIONS (9)
  - CENTRAL PONTINE MYELINOLYSIS [None]
  - ENCEPHALOPATHY [None]
  - HYPERAMMONAEMIA [None]
  - HYPERCREATINAEMIA [None]
  - HYPERNATRAEMIA [None]
  - HYPOKALAEMIA [None]
  - LOSS OF CONSCIOUSNESS [None]
  - METABOLIC ACIDOSIS [None]
  - QUADRIPLEGIA [None]
